FAERS Safety Report 17909864 (Version 7)
Quarter: 2021Q4

REPORT INFORMATION
  Report Type: 
  Country: DE (occurrence: DE)
  Receive Date: 20200617
  Receipt Date: 20211027
  Transmission Date: 20220303
  Serious: Yes (Other)
  Sender: FDA-Public Use
  Company Number: DE-ANIPHARMA-2020-DE-000027

PATIENT
  Sex: Female
  Weight: 73 kg

DRUGS (3)
  1. ANASTROZOLE [Suspect]
     Active Substance: ANASTROZOLE
     Indication: Breast cancer metastatic
     Dosage: 1 MG DAILY
     Route: 048
     Dates: start: 20180720, end: 20200405
  2. RIBOCICLIB [Suspect]
     Active Substance: RIBOCICLIB
     Dosage: 600MG (21 DAYS INTAKE, 7 DAYS PAUSE)/ 600MG, DAILY (FOR 3 WEEKS, 1 WEEK PAUSE)/600MG, DAILY (21 DAYS
     Route: 048
     Dates: start: 20180730, end: 20201019
  3. EXEMESTANE [Suspect]
     Active Substance: EXEMESTANE
     Dosage: 25 MG DAILY
     Route: 048
     Dates: start: 20200406

REACTIONS (4)
  - Infection [Recovered/Resolved]
  - Neutrophil count decreased [Recovered/Resolved]
  - Fatigue [Recovered/Resolved]
  - Nasopharyngitis [Recovered/Resolved]

NARRATIVE: CASE EVENT DATE: 20191201
